FAERS Safety Report 7236036-5 (Version None)
Quarter: 2011Q1

REPORT INFORMATION
  Report Type: 
  Country: None (occurrence: None)
  Receive Date: 20110111
  Receipt Date: 20110104
  Transmission Date: 20110831
  Serious: Yes (Death, Hospitalization, Other)
  Sender: FDA-Public Use
  Company Number: 2010SP057492

PATIENT
  Age: 46 Year
  Sex: Male

DRUGS (16)
  1. INTRON A [Suspect]
     Indication: HEPATITIS C
     Dosage: ; SC
     Route: 058
     Dates: start: 20031201
  2. METHADONE [Concomitant]
  3. PEGASYS [Suspect]
     Indication: HEPATITIS C
     Dates: start: 20031201
  4. PROCRIT [Suspect]
     Indication: PRODUCT USED FOR UNKNOWN INDICATION
  5. EPOGEN [Suspect]
     Indication: PRODUCT USED FOR UNKNOWN INDICATION
     Dosage: 6000 IU;
     Dates: start: 20011201, end: 20011201
  6. EPOGEN [Suspect]
     Indication: PRODUCT USED FOR UNKNOWN INDICATION
     Dosage: 6000 IU;
     Dates: start: 20020201, end: 20020201
  7. EPOGEN [Suspect]
     Indication: PRODUCT USED FOR UNKNOWN INDICATION
     Dosage: 6000 IU;
     Dates: start: 20031219, end: 20031219
  8. PEG-INTRON [Suspect]
     Indication: HEPATITIS C
     Dates: start: 20031201
  9. COPEGUS [Suspect]
     Indication: HEPATITIS C
     Dates: start: 20031201
  10. OPRELVEKIN [Concomitant]
  11. FILGRASTIM [Suspect]
     Indication: PRODUCT USED FOR UNKNOWN INDICATION
  12. INTERFERON ALFA-2B W/RIBAVIRIN [Suspect]
     Indication: HEPATITIS C
     Dates: start: 20030101
  13. GABAPENTIN [Concomitant]
  14. RIBAVIRIN [Suspect]
     Indication: HEPATITIS C
     Dosage: BID; PO
     Route: 048
     Dates: start: 20011201, end: 20020701
  15. RIBAVIRIN [Suspect]
     Indication: HEPATITIS C
     Dosage: BID; PO
     Route: 048
     Dates: start: 20031201
  16. BUPROPION [Concomitant]

REACTIONS (18)
  - INTESTINAL ISCHAEMIA [None]
  - LARGE INTESTINE PERFORATION [None]
  - ULCER [None]
  - SKIN GRAFT FAILURE [None]
  - DIARRHOEA [None]
  - DRUG INEFFECTIVE [None]
  - GASTROINTESTINAL DISORDER [None]
  - COLLAPSE OF LUNG [None]
  - PNEUMONIA ASPIRATION [None]
  - HAEMATOCHEZIA [None]
  - PERITONEAL ADHESIONS [None]
  - ABDOMINAL DISTENSION [None]
  - INTESTINAL DILATATION [None]
  - OVERDOSE [None]
  - PERITONITIS [None]
  - SCROTAL OEDEMA [None]
  - PAIN [None]
  - OFF LABEL USE [None]
